FAERS Safety Report 23260581 (Version 2)
Quarter: 2024Q2

REPORT INFORMATION
  Report Type: Report from Study
  Country: DE (occurrence: DE)
  Receive Date: 20231205
  Receipt Date: 20240610
  Transmission Date: 20240715
  Serious: Yes (Other)
  Sender: FDA-Public Use
  Company Number: DE-CELLTRION INC.-2023DE023045

PATIENT

DRUGS (1)
  1. INFLIXIMAB-DYYB [Suspect]
     Active Substance: INFLIXIMAB-DYYB
     Indication: Axial spondyloarthritis
     Dosage: UNKNOWN
     Route: 058

REACTIONS (2)
  - Pulmonary microemboli [Unknown]
  - Factor V Leiden mutation [Unknown]

NARRATIVE: CASE EVENT DATE: 20230105
